FAERS Safety Report 9575693 (Version 2)
Quarter: 2013Q4

REPORT INFORMATION
  Report Type: Spontaneous
  Country: US (occurrence: US)
  Receive Date: 20131001
  Receipt Date: 20131001
  Transmission Date: 20140711
  Serious: No
  Sender: FDA-Public Use
  Company Number: US-AMGEN-USASP2012083653

PATIENT
  Age: 52 Year
  Sex: Female
  Weight: 155 kg

DRUGS (10)
  1. ENBREL [Suspect]
     Indication: PSORIASIS
     Dosage: 50 MG, 2 TIMES/WK
     Dates: start: 20120612
  2. ENBREL [Suspect]
     Indication: PSORIATIC ARTHROPATHY
  3. ALLEGRA [Concomitant]
     Dosage: 180 MG, UNK
     Route: 048
  4. ASTALIN [Concomitant]
     Dosage: NASAL
  5. CELEBREX [Concomitant]
     Dosage: 200 MG, UNK
  6. FLONASE [Concomitant]
     Dosage: 50 UNK, NASAL
  7. FOSINOPRIL [Concomitant]
     Dosage: 10 MG, UNK
  8. PRIMAQUIN                          /00137102/ [Concomitant]
     Dosage: 0.4 MG, UNK
  9. TRAMADOL [Concomitant]
     Dosage: 50 MG, UNK
  10. EDOTI [Concomitant]
     Dosage: 15 MG, UNK

REACTIONS (8)
  - Nausea [Not Recovered/Not Resolved]
  - Fatigue [Not Recovered/Not Resolved]
  - Arthralgia [Not Recovered/Not Resolved]
  - Somnolence [Not Recovered/Not Resolved]
  - Fungal infection [Not Recovered/Not Resolved]
  - Injection site erythema [Not Recovered/Not Resolved]
  - Injection site bruising [Not Recovered/Not Resolved]
  - Injection site reaction [Not Recovered/Not Resolved]
